FAERS Safety Report 15434166 (Version 1)
Quarter: 2018Q3

REPORT INFORMATION
  Report Type: Spontaneous
  Country: US (occurrence: US)
  Receive Date: 20180927
  Receipt Date: 20180927
  Transmission Date: 20181010
  Serious: Yes (Life-Threatening)
  Sender: FDA-Public Use
  Company Number: PHHY2018US103289

PATIENT
  Age: 10 Year
  Sex: Male

DRUGS (2)
  1. COLCHICINE. [Suspect]
     Active Substance: COLCHICINE
     Indication: PRODUCT USED FOR UNKNOWN INDICATION
     Dosage: 8 DF, UNK (4.8 MG, 8 X 0.6?MG TABLETS)
     Route: 065
  2. FUROSEMIDE. [Suspect]
     Active Substance: FUROSEMIDE
     Indication: PRODUCT USED FOR UNKNOWN INDICATION
     Dosage: 6 DF, UNK (240 MG, 6 X 40?MG TABLETS)
     Route: 065

REACTIONS (7)
  - Toxicity to various agents [Recovering/Resolving]
  - Atrioventricular block second degree [Recovering/Resolving]
  - Sinus bradycardia [Recovering/Resolving]
  - Vomiting [Recovered/Resolved]
  - Abdominal pain [Recovered/Resolved]
  - Sinus arrhythmia [Recovering/Resolving]
  - Dizziness [Recovered/Resolved]
